FAERS Safety Report 11141418 (Version 2)
Quarter: 2015Q3

REPORT INFORMATION
  Report Type: Spontaneous
  Country: BR (occurrence: BR)
  Receive Date: 20150527
  Receipt Date: 20150715
  Transmission Date: 20151125
  Serious: Yes (Other)
  Sender: FDA-Public Use
  Company Number: BR-ELI_LILLY_AND_COMPANY-BR201505006239

PATIENT
  Sex: Male
  Weight: 103 kg

DRUGS (9)
  1. RASILEZ [Concomitant]
     Active Substance: ALISKIREN
     Dosage: UNK
     Route: 065
  2. GALVUS [Concomitant]
     Active Substance: VILDAGLIPTIN
     Dosage: UNK
     Route: 065
  3. AAS [Concomitant]
     Active Substance: ASPIRIN
     Dosage: UNK UNK, QD
     Route: 065
  4. LOVASTATIN. [Concomitant]
     Active Substance: LOVASTATIN
     Dosage: UNK
     Route: 065
  5. NEBILET [Concomitant]
     Active Substance: NEBIVOLOL
     Dosage: UNK
     Route: 065
  6. HUMULIN N [Suspect]
     Active Substance: INSULIN HUMAN
     Indication: TYPE 2 DIABETES MELLITUS
     Dosage: 50 IU, EACH MORNING
     Route: 058
     Dates: start: 2007, end: 201505
  7. GABAPENTIN. [Concomitant]
     Active Substance: GABAPENTIN
     Dosage: UNK
     Route: 065
  8. HUMULIN N [Suspect]
     Active Substance: INSULIN HUMAN
     Dosage: 25 IU, EACH EVENING
     Route: 058
     Dates: start: 2007, end: 201505
  9. LASIX [Concomitant]
     Active Substance: FUROSEMIDE
     Dosage: 40 MG, QD
     Route: 065

REACTIONS (7)
  - Abscess [Recovering/Resolving]
  - Impaired healing [Recovering/Resolving]
  - Fall [Recovered/Resolved]
  - Diabetic neuropathy [Not Recovered/Not Resolved]
  - Hyperkeratosis [Recovering/Resolving]
  - Hyperglycaemia [Not Recovered/Not Resolved]
  - Drug ineffective [Not Recovered/Not Resolved]

NARRATIVE: CASE EVENT DATE: 2010
